FAERS Safety Report 6843041-7 (Version None)
Quarter: 2010Q3

REPORT INFORMATION
  Report Type: 
  Country: None (occurrence: None)
  Receive Date: 20100712
  Receipt Date: 20100701
  Transmission Date: 20110219
  Serious: Yes (Other)
  Sender: FDA-Public Use
  Company Number: TRP_07085_2010

PATIENT
  Age: 55 Year
  Sex: Male
  Weight: 87.5442 kg

DRUGS (19)
  1. RIBAVARIN [Suspect]
     Indication: HEPATITIS C
     Dosage: (600 MG BID ORAL)
     Route: 048
     Dates: start: 20100225, end: 20100330
  2. PEG-INTRON [Suspect]
     Indication: HEPATITIS C
     Dosage: (150 ?G 1X/WEEK SUBCUTANEOUS)
     Route: 058
     Dates: start: 20100225, end: 20100330
  3. HYDRALAZINE HCL [Concomitant]
  4. CLONIDINE HCL [Concomitant]
  5. VALTURNA [Concomitant]
  6. METOPROLOL TARTRATE [Concomitant]
  7. ATENOLOL [Concomitant]
  8. LISINOPRIL [Concomitant]
  9. PLAVIX [Concomitant]
  10. TEKTURNA [Concomitant]
  11. TRAMADOL HCL [Concomitant]
  12. IBUPROFEN [Concomitant]
  13. MELOXICAM [Concomitant]
  14. VENLAFAXINE [Concomitant]
  15. AMLODIPINE BESYLATE [Concomitant]
  16. FAMOTIDINE [Concomitant]
  17. SIMVASTATIN [Concomitant]
  18. VICODIN [Concomitant]
  19. ALBUTEROL [Concomitant]

REACTIONS (9)
  - DECREASED APPETITE [None]
  - DIARRHOEA [None]
  - FAECAL INCONTINENCE [None]
  - FATIGUE [None]
  - HOMICIDAL IDEATION [None]
  - INSOMNIA [None]
  - MOOD ALTERED [None]
  - NAUSEA [None]
  - VOMITING [None]
